FAERS Safety Report 5665270-0 (Version None)
Quarter: 2008Q1

REPORT INFORMATION
  Report Type: 
  Country: None (occurrence: None)
  Receive Date: 20080314
  Receipt Date: 20080201
  Transmission Date: 20080703
  Serious: No
  Sender: FDA-Public Use
  Company Number: US-ABBOTT-07P-163-0375767-00

PATIENT
  Sex: Female
  Weight: 47.216 kg

DRUGS (6)
  1. HUMIRA [Suspect]
     Indication: CROHN'S DISEASE
     Route: 058
     Dates: start: 20070403
  2. GLIPIZIDE [Concomitant]
     Indication: DIABETES MELLITUS
     Route: 048
  3. DURGESIC PAIN PATCH [Concomitant]
     Indication: PAIN
     Route: 061
  4. UNITHYL TABLET [Concomitant]
     Indication: DRUG USE FOR UNKNOWN INDICATION
     Route: 048
  5. MONTELUKAST SODIUM [Concomitant]
     Indication: RESPIRATORY DISORDER
     Route: 048
  6. SPIRVA [Concomitant]
     Indication: RESPIRATORY DISORDER
     Route: 055

REACTIONS (2)
  - ABDOMINAL PAIN UPPER [None]
  - DYSPEPSIA [None]
